FAERS Safety Report 9415737 (Version 2)
Quarter: 2013Q3

REPORT INFORMATION
  Report Type: Spontaneous
  Country: JP (occurrence: JP)
  Receive Date: 20130723
  Receipt Date: 20130819
  Transmission Date: 20140515
  Serious: Yes (Other)
  Sender: FDA-Public Use
  Company Number: JP-PFIZER INC-2013214701

PATIENT
  Age: 94 Year
  Sex: Female

DRUGS (4)
  1. FLUVOXAMINE MALEATE [Suspect]
     Indication: ANXIETY
     Dosage: 25 MG, 1X/DAY (TAKEN AFTER DINNER)
     Route: 048
  2. FLUVOXAMINE MALEATE [Interacting]
     Dosage: UNK
     Route: 048
  3. CELECOXIB [Interacting]
     Indication: ARTHRITIS
     Dosage: UNK
     Route: 048
  4. CELECOXIB [Interacting]
     Indication: JOINT SWELLING

REACTIONS (6)
  - Drug interaction [Recovering/Resolving]
  - Delirium [Recovering/Resolving]
  - Toxicity to various agents [Recovering/Resolving]
  - Irritability [Recovering/Resolving]
  - Joint swelling [Recovering/Resolving]
  - Restlessness [Recovering/Resolving]
